FAERS Safety Report 9300619 (Version 1)
Quarter: 2013Q2

REPORT INFORMATION
  Report Type: Other
  Country: DE (occurrence: DE)
  Receive Date: 20130521
  Receipt Date: 20130521
  Transmission Date: 20140414
  Serious: Yes (Hospitalization, Other)
  Sender: FDA-Public Use
  Company Number: DE-NOVEN-13DE006805

PATIENT
  Age: 0 Year
  Sex: Female
  Weight: 3.35 kg

DRUGS (1)
  1. PAROXETINE [Suspect]
     Indication: DEPRESSION
     Dosage: 20 MG/DL, UNK - MOTHER
     Route: 064
     Dates: start: 20120228, end: 20121206

REACTIONS (5)
  - Opisthotonus [Unknown]
  - Congenital choroid plexus cyst [Unknown]
  - Neonatal respiratory distress syndrome [Recovered/Resolved]
  - Hypertriglyceridaemia [Recovering/Resolving]
  - Foetal exposure during pregnancy [Unknown]
